FAERS Safety Report 16821173 (Version 1)
Quarter: 2019Q3

REPORT INFORMATION
  Report Type: Spontaneous
  Country: CN (occurrence: CN)
  Receive Date: 20190918
  Receipt Date: 20190918
  Transmission Date: 20191005
  Serious: Yes (Other)
  Sender: FDA-Public Use
  Company Number: CN-TERSERA THERAPEUTICS LLC-2019TRS001961

PATIENT

DRUGS (6)
  1. LEUPRORELIN [Concomitant]
     Active Substance: LEUPROLIDE ACETATE
     Indication: PROSTATE CANCER
     Dosage: 3.5 MILLIGRAM, MONTHLY
     Route: 065
  2. ZOLADEX [Suspect]
     Active Substance: GOSERELIN ACETATE
     Indication: PROSTATE CANCER
     Dosage: 3.6 MILLIGRAM, MONTHLY
     Route: 058
     Dates: start: 2014
  3. CASODEX [Suspect]
     Active Substance: BICALUTAMIDE
     Dosage: 50 MILLIGRAM, QD
     Route: 048
  4. CASODEX [Suspect]
     Active Substance: BICALUTAMIDE
     Indication: PROSTATE CANCER
     Dosage: 50 MILLIGRAM, QD
     Route: 048
     Dates: start: 2014
  5. AMLODIPINE [Concomitant]
     Active Substance: AMLODIPINE BESYLATE
     Indication: HYPERTENSION
     Dosage: 1 DOSAGE FORM, QD
     Route: 048
  6. TRIPTORELIN [Concomitant]
     Active Substance: TRIPTORELIN
     Indication: PROSTATE CANCER
     Dosage: 3.5 MILLIGRAM, MONTHLY
     Route: 065

REACTIONS (3)
  - Drug resistance [Not Recovered/Not Resolved]
  - Malignant neoplasm progression [Unknown]
  - Hyperhidrosis [Unknown]
